FAERS Safety Report 5949386-7 (Version None)
Quarter: 2008Q4

REPORT INFORMATION
  Report Type: 
  Country: None (occurrence: None)
  Receive Date: 20081112
  Receipt Date: 20081029
  Transmission Date: 20090506
  Serious: Yes (Other)
  Sender: FDA-Public Use
  Company Number: PHHY2008DE26539

PATIENT
  Age: 69 Year
  Sex: Male

DRUGS (2)
  1. PROVAS [Suspect]
     Dosage: 80 MG
     Dates: start: 20080101
  2. BETA BLOCKING AGENTS [Concomitant]

REACTIONS (6)
  - ANAL HAEMORRHAGE [None]
  - ARTHRALGIA [None]
  - DIARRHOEA [None]
  - EPISTAXIS [None]
  - HEART RATE INCREASED [None]
  - THROAT IRRITATION [None]
